FAERS Safety Report 8341251-3 (Version None)
Quarter: 2012Q2

REPORT INFORMATION
  Report Type: 
  Country: None (occurrence: None)
  Receive Date: 20120507
  Receipt Date: 20120426
  Transmission Date: 20120825
  Serious: Yes (Hospitalization)
  Sender: FDA-Public Use
  Company Number: US-JNJFOC-20120411785

PATIENT
  Sex: Female
  Weight: 63.2 kg

DRUGS (10)
  1. HUMIRA [Concomitant]
     Dates: start: 20120124
  2. MESALAMINE [Concomitant]
  3. FERROUS SULFATE TAB [Concomitant]
  4. FOLIC ACID [Concomitant]
  5. OMEPRAZOLE [Concomitant]
  6. PROZAC [Concomitant]
  7. CALCIUM [Concomitant]
  8. PROBIOTICS [Concomitant]
  9. INFLIXIMAB, RECOMBINANT [Suspect]
     Indication: COLITIS ULCERATIVE
     Route: 042
     Dates: start: 20110505, end: 20111005
  10. PREDNISONE [Concomitant]

REACTIONS (1)
  - COLITIS ULCERATIVE [None]
